FAERS Safety Report 20153560 (Version 5)
Quarter: 2022Q3

REPORT INFORMATION
  Report Type: Report from Study
  Country: DE (occurrence: DE)
  Receive Date: 20211206
  Receipt Date: 20220930
  Transmission Date: 20221026
  Serious: Yes (Other)
  Sender: FDA-Public Use
  Company Number: DE-ABBVIE-21K-062-4185256-00

PATIENT
  Age: 60 Year
  Sex: Male

DRUGS (20)
  1. SKYRIZI [Suspect]
     Active Substance: RISANKIZUMAB-RZAA
     Indication: Psoriasis
     Dosage: AT WEEK 0 AND 4
     Route: 058
     Dates: start: 20201203, end: 20201229
  2. SKYRIZI [Suspect]
     Active Substance: RISANKIZUMAB-RZAA
     Route: 058
     Dates: start: 20201229
  3. SKYRIZI [Suspect]
     Active Substance: RISANKIZUMAB-RZAA
     Route: 058
     Dates: start: 20210323
  4. BUTYLSCOPOLAMINE BROMIDE [Concomitant]
     Active Substance: BUTYLSCOPOLAMINE BROMIDE
     Indication: Abdominal pain
     Dosage: DRAGEES, 10MG
     Route: 048
     Dates: start: 20220503
  5. ENSTILAR [Concomitant]
     Active Substance: BETAMETHASONE DIPROPIONATE\CALCIPOTRIENE HYDRATE
     Indication: Psoriasis
     Dosage: 1 APPLICATION; ROUTE: TOPIC/SKIN/DERMAL SPRAY
     Route: 065
     Dates: start: 20200910
  6. AC7 KOMPLEX [Concomitant]
     Indication: Nutritional supplementation
     Route: 048
     Dates: start: 20201118
  7. MORONAL V [Concomitant]
     Indication: Frequent bowel movements
     Dosage: 2 MORNING, 2 AFTERNOON, 2 NIGHT
     Route: 048
     Dates: start: 20201118
  8. MULTILIND [Concomitant]
     Indication: Intertrigo
     Dosage: 1 APPLICATION; ROUTE: TOPIC/SKIN/DERMAL SPRAY
     Dates: start: 20201211, end: 20201231
  9. CURATODERM [Concomitant]
     Indication: Psoriasis
     Dosage: 1 APPLICATION, ROUTE: TOPIC/SKIN/DERMAL SPRAY
     Dates: start: 20210323, end: 20210407
  10. CURATODERM [Concomitant]
     Indication: Psoriasis
     Dosage: 1 APPLICATION TOPIC / SKIN / DERMAL SPRAY, EMULSION
     Dates: start: 20211130
  11. CANDIO HERMAL [Concomitant]
     Indication: Intertrigo
     Dosage: 1 APPLICATION; ROUTE: TOPIC/SKIN/DERMAL SPRAY
     Dates: start: 20201229, end: 20201231
  12. ESCHERICHIA COLI [Concomitant]
     Active Substance: ESCHERICHIA COLI
     Indication: Frequent bowel movements
     Route: 048
     Dates: start: 20210303, end: 20210531
  13. ITRACONAZOLE [Concomitant]
     Active Substance: ITRACONAZOLE
     Indication: Gastrointestinal candidiasis
     Route: 048
     Dates: start: 20210714, end: 20210811
  14. OMNI BIOTIC 6 [Concomitant]
     Indication: Product used for unknown indication
     Route: 065
  15. CURATODERM [Concomitant]
     Indication: Psoriasis
     Dosage: EMULSION, 1 APPLICATION TOPICAL/SKIN/DERMAL SPRAY
     Route: 065
     Dates: start: 20211130
  16. OMNI BIOTIC AB 10 [Concomitant]
     Indication: Dysbiosis
     Route: 048
     Dates: start: 20211027, end: 20220115
  17. PANTOZOL [Concomitant]
     Active Substance: PANTOPRAZOLE SODIUM
     Indication: Abdominal pain
     Route: 048
     Dates: start: 20220503
  18. Moronal dragees [Concomitant]
     Indication: Frequent bowel movements
     Dosage: 2 MORNING, 2 AFTERNOON, 2 NIGHT
     Route: 048
     Dates: start: 20201118, end: 20210530
  19. METAMIZOLE [Concomitant]
     Active Substance: METAMIZOLE
     Indication: Product used for unknown indication
  20. MAGNESIUM [Concomitant]
     Active Substance: MAGNESIUM
     Indication: Abdominal pain
     Route: 048
     Dates: start: 20220426, end: 20220503

REACTIONS (1)
  - Cataract [Recovered/Resolved]

NARRATIVE: CASE EVENT DATE: 20211025
